FAERS Safety Report 7904050-X (Version None)
Quarter: 2011Q4

REPORT INFORMATION
  Report Type: 
  Country: None (occurrence: None)
  Receive Date: 20111109
  Receipt Date: 20111107
  Transmission Date: 20120403
  Serious: Yes (Other)
  Sender: FDA-Public Use
  Company Number: JP-PFIZER INC-2011272115

PATIENT
  Age: 81 Year
  Sex: Female

DRUGS (6)
  1. ROHYPNOL [Concomitant]
  2. MEDROL [Suspect]
  3. MUCOSTA [Concomitant]
  4. RHEUMATREX [Suspect]
     Indication: RHEUMATOID ARTHRITIS
     Dosage: 6 MG, WEEKLY
  5. RABEPRAZOLE SODIUM [Concomitant]
  6. ADALAT [Concomitant]

REACTIONS (1)
  - HAEMORRHAGE SUBCUTANEOUS [None]
